FAERS Safety Report 6246694-X (Version None)
Quarter: 2009Q2

REPORT INFORMATION
  Report Type: 
  Country: None (occurrence: None)
  Receive Date: 20090626
  Receipt Date: 20090622
  Transmission Date: 20091009
  Serious: Yes (Hospitalization)
  Sender: FDA-Public Use
  Company Number: CH-ROXANE LABORATORIES, INC.-2009-RO-00606RO

PATIENT
  Age: 80 Year
  Sex: Female

DRUGS (9)
  1. LEVETIRACETAM [Suspect]
     Indication: CONVULSION
     Dates: start: 20020101
  2. LEVETIRACETAM [Suspect]
  3. VERAPAMIL [Suspect]
  4. PROPRANOLOL HYDROCHLORIDE [Suspect]
  5. METFORMIN HCL [Suspect]
  6. OXAZEPAM [Suspect]
  7. ESCITALOPRAM [Suspect]
  8. LEVODOPA/BENSERAZIDE [Suspect]
  9. CLONAZEPAM [Concomitant]

REACTIONS (3)
  - CENTRAL NERVOUS SYSTEM LESION [None]
  - DRUG TOXICITY [None]
  - ENCEPHALOPATHY [None]
